FAERS Safety Report 9298288 (Version 1)
Quarter: 2013Q2

REPORT INFORMATION
  Report Type: Spontaneous
  Country: US (occurrence: US)
  Receive Date: 20130520
  Receipt Date: 20130520
  Transmission Date: 20140414
  Serious: No
  Sender: FDA-Public Use
  Company Number: US-B.I. PHARMACEUTICALS,INC./RIDGEFIELD-2013-BI-13793BP

PATIENT
  Age: 65 Year
  Sex: Male
  Weight: 59 kg

DRUGS (3)
  1. SPIRIVA [Suspect]
     Indication: ASTHMA
     Dosage: 18 MCG
     Route: 055
     Dates: start: 201304
  2. FLOVENT [Concomitant]
     Indication: ASTHMA
     Dosage: 440 MCG
     Route: 055
     Dates: start: 201303
  3. ALBUTEROL NEBULIZER [Concomitant]
     Indication: ASTHMA
     Dosage: INHALATION SPRAY
     Route: 045
     Dates: start: 20130201

REACTIONS (1)
  - Dyspnoea [Recovered/Resolved]
